FAERS Safety Report 20542222 (Version 1)
Quarter: 2022Q1

REPORT INFORMATION
  Report Type: Spontaneous
  Country: IT (occurrence: None)
  Receive Date: 20220302
  Receipt Date: 20220302
  Transmission Date: 20220424
  Serious: Yes (Other)
  Sender: FDA-Public Use
  Company Number: 2022A087822

PATIENT
  Sex: Male

DRUGS (1)
  1. DAPAGLIFLOZIN [Suspect]
     Active Substance: DAPAGLIFLOZIN
     Indication: Diabetic metabolic decompensation
     Route: 048

REACTIONS (3)
  - Ejection fraction abnormal [Unknown]
  - Haemorrhage [Unknown]
  - Blood urine present [Unknown]
